FAERS Safety Report 26000570 (Version 1)
Quarter: 2025Q4

REPORT INFORMATION
  Report Type: Spontaneous
  Country: US (occurrence: None)
  Receive Date: 20251105
  Receipt Date: 20251105
  Transmission Date: 20260117
  Serious: Yes (Hospitalization)
  Sender: FDA-CTU
  Company Number: None

PATIENT
  Age: 41 Year
  Sex: Male
  Weight: 111.1 kg

DRUGS (4)
  1. BLEOMYCIN [Suspect]
     Active Substance: BLEOMYCIN SULFATE
     Dates: end: 20251024
  2. DACARBAZINE [Suspect]
     Active Substance: DACARBAZINE
     Dates: end: 20251024
  3. DOXORUBICIN HYDROCHLORIDE [Suspect]
     Active Substance: DOXORUBICIN HYDROCHLORIDE
     Dates: end: 20251024
  4. VINBLASTINE SULFATE [Suspect]
     Active Substance: VINBLASTINE SULFATE
     Dates: end: 20251024

REACTIONS (8)
  - Micturition urgency [None]
  - Gastrointestinal pain [None]
  - Rectal haemorrhage [None]
  - White blood cell count decreased [None]
  - Faecal occult blood positive [None]
  - Rash [None]
  - Pruritus [None]
  - Anal fissure haemorrhage [None]

NARRATIVE: CASE EVENT DATE: 20251101
